FAERS Safety Report 18500867 (Version 1)
Quarter: 2020Q4

REPORT INFORMATION
  Report Type: Spontaneous
  Country: US (occurrence: US)
  Receive Date: 20201113
  Receipt Date: 20201113
  Transmission Date: 20210114
  Serious: Yes (Other)
  Sender: FDA-Public Use
  Company Number: US-ELI_LILLY_AND_COMPANY-US202011001021

PATIENT
  Age: 67 Year
  Sex: Female

DRUGS (5)
  1. HUMALOG [Suspect]
     Active Substance: INSULIN LISPRO
     Dosage: UNK UNK, PRN
     Route: 058
  2. HUMALOG [Suspect]
     Active Substance: INSULIN LISPRO
     Indication: STEROID DIABETES
     Dosage: UNK UNK, PRN
     Route: 058
     Dates: start: 202009
  3. HUMALOG [Suspect]
     Active Substance: INSULIN LISPRO
     Dosage: UNK UNK, PRN
     Route: 058
  4. PREDNISONE. [Concomitant]
     Active Substance: PREDNISONE
     Indication: AUTOIMMUNE DISORDER
     Dosage: 100 MG
  5. HUMALOG [Suspect]
     Active Substance: INSULIN LISPRO
     Indication: STEROID DIABETES
     Dosage: UNK UNK, PRN
     Route: 058
     Dates: start: 202009

REACTIONS (4)
  - Product storage error [Unknown]
  - Blood glucose increased [Recovering/Resolving]
  - Weight decreased [Unknown]
  - Syncope [Recovered/Resolved]

NARRATIVE: CASE EVENT DATE: 202009
